FAERS Safety Report 5583837-5 (Version None)
Quarter: 2008Q1

REPORT INFORMATION
  Report Type: 
  Country: None (occurrence: None)
  Receive Date: 20080108
  Receipt Date: 20080103
  Transmission Date: 20080703
  Serious: Yes (Death)
  Sender: FDA-Public Use
  Company Number: PHEH2008US00496

PATIENT
  Age: 37 Year
  Sex: Male

DRUGS (1)
  1. NEORAL [Suspect]
     Dosage: 300 MG, BID
     Route: 048
     Dates: start: 20071201

REACTIONS (1)
  - SEPSIS [None]
